FAERS Safety Report 24547902 (Version 5)
Quarter: 2025Q2

REPORT INFORMATION
  Report Type: Report from Study
  Country: US (occurrence: US)
  Receive Date: 20241025
  Receipt Date: 20250423
  Transmission Date: 20250716
  Serious: Yes (Hospitalization, Other)
  Sender: TAKEDA
  Company Number: US-TAKEDA-2024TUS036885

PATIENT
  Sex: Male
  Weight: 108.84 kg

DRUGS (32)
  1. HUMAN IMMUNOGLOBULIN G [Suspect]
     Active Substance: HUMAN IMMUNOGLOBULIN G
     Indication: Immunodeficiency common variable
     Dosage: 80 GRAM, Q3WEEKS
     Dates: start: 20240105
  2. PANTOPRAZOLE [Suspect]
     Active Substance: PANTOPRAZOLE
     Indication: Product used for unknown indication
  3. ACETAMINOPHEN [Concomitant]
     Active Substance: ACETAMINOPHEN
  4. EPINEPHRINE [Concomitant]
     Active Substance: EPINEPHRINE
  5. CARVEDILOL [Concomitant]
     Active Substance: CARVEDILOL
  6. VALACYCLOVIR [Concomitant]
     Active Substance: VALACYCLOVIR HYDROCHLORIDE
  7. LEVOTHYROXINE SODIUM [Concomitant]
     Active Substance: LEVOTHYROXINE SODIUM
  8. CYMBALTA [Concomitant]
     Active Substance: DULOXETINE HYDROCHLORIDE
  9. TESTOSTERONE [Concomitant]
     Active Substance: TESTOSTERONE
  10. LISINOPRIL [Concomitant]
     Active Substance: LISINOPRIL
  11. SIMVASTATIN [Concomitant]
     Active Substance: SIMVASTATIN
  12. POTASSIUM CHLORIDE [Concomitant]
     Active Substance: POTASSIUM CHLORIDE
  13. ANASTROZOLE [Concomitant]
     Active Substance: ANASTROZOLE
  14. TESTOSTERONE CYPIONATE [Concomitant]
     Active Substance: TESTOSTERONE CYPIONATE
  15. KEVZARA [Concomitant]
     Active Substance: SARILUMAB
  16. SODIUM CHLORIDE [Concomitant]
     Active Substance: SODIUM CHLORIDE
  17. TADALAFIL [Concomitant]
     Active Substance: TADALAFIL
  18. FLUCONAZOLE [Concomitant]
     Active Substance: FLUCONAZOLE
  19. FLECTOR [Concomitant]
     Active Substance: DICLOFENAC EPOLAMINE
  20. GABAPENTIN [Concomitant]
     Active Substance: GABAPENTIN
  21. LIDOCAINE [Concomitant]
     Active Substance: LIDOCAINE
  22. OXYCODONE HYDROCHLORIDE [Concomitant]
     Active Substance: OXYCODONE HYDROCHLORIDE
  23. AMITIZA [Concomitant]
     Active Substance: LUBIPROSTONE
  24. OXYGEN [Concomitant]
     Active Substance: OXYGEN
  25. CHLORTHALIDONE [Concomitant]
     Active Substance: CHLORTHALIDONE
  26. DIPHENHYDRAMINE HYDROCHLORIDE [Concomitant]
     Active Substance: DIPHENHYDRAMINE HYDROCHLORIDE
  27. METHOTREXATE [Concomitant]
     Active Substance: METHOTREXATE
  28. VOLTAREN [Concomitant]
     Active Substance: DICLOFENAC SODIUM
  29. METFORMIN [Concomitant]
     Active Substance: METFORMIN HYDROCHLORIDE
  30. HYDROMORPHONE HCL [Concomitant]
     Active Substance: HYDROMORPHONE HYDROCHLORIDE
  31. DEXILANT [Concomitant]
     Active Substance: DEXLANSOPRAZOLE
  32. LEUCOVORIN CALCIUM [Concomitant]
     Active Substance: LEUCOVORIN CALCIUM

REACTIONS (7)
  - Narcolepsy [Unknown]
  - Haemorrhage [Unknown]
  - Haemorrhoids [Unknown]
  - Somnambulism [Unknown]
  - Fall [Unknown]
  - Hypersensitivity [Unknown]
  - Back pain [Unknown]
